FAERS Safety Report 4629637-1 (Version None)
Quarter: 2005Q2

REPORT INFORMATION
  Report Type: 
  Country: None (occurrence: None)
  Receive Date: 20050406
  Receipt Date: 20050324
  Transmission Date: 20051028
  Serious: Yes (Other)
  Sender: FDA-Public Use
  Company Number: 2005045765

PATIENT
  Age: 63 Year
  Sex: Male

DRUGS (5)
  1. DILANTIN [Suspect]
     Indication: CONVULSION
     Dosage: 300 MG (100 MG, 1 IN 1D)
  2. VALPROATE SODIUM [Concomitant]
  3. OXYBUTYNIN CHLORIDE [Concomitant]
  4. ASPIRIN [Concomitant]
  5. TRANDOLAPRIL (TRANDOLAPRIL) [Concomitant]

REACTIONS (2)
  - ANTICONVULSANT DRUG LEVEL BELOW THERAPEUTIC [None]
  - CONVULSION [None]
